FAERS Safety Report 9215788 (Version 2)
Quarter: 2013Q2

REPORT INFORMATION
  Report Type: Spontaneous
  Country: US (occurrence: US)
  Receive Date: 20130408
  Receipt Date: 20130515
  Transmission Date: 20140414
  Serious: No
  Sender: FDA-Public Use
  Company Number: US-009507513-1304USA002257

PATIENT
  Age: 50 Year
  Sex: Male
  Weight: 81.63 kg

DRUGS (1)
  1. NUVARING [Suspect]
     Route: 067

REACTIONS (1)
  - Erectile dysfunction [Recovered/Resolved]
